FAERS Safety Report 26109085 (Version 1)
Quarter: 2025Q4

REPORT INFORMATION
  Report Type: Spontaneous
  Country: EU (occurrence: EU)
  Receive Date: 20251201
  Receipt Date: 20251201
  Transmission Date: 20260118
  Serious: Yes (Other)
  Sender: INCYTE
  Company Number: EU-002147023-NVSC2025BG181810

PATIENT
  Age: 63 Year

DRUGS (1)
  1. RUXOLITINIB [Suspect]
     Active Substance: RUXOLITINIB
     Indication: Primary myelofibrosis
     Dosage: 20 MG, BID (PER OS)

REACTIONS (8)
  - Leukopenia [Not Recovered/Not Resolved]
  - Neutropenia [Not Recovered/Not Resolved]
  - Splenomegaly [Unknown]
  - Accessory spleen [Unknown]
  - Hepatic steatosis [Unknown]
  - Leukocytosis [Recovered/Resolved]
  - Anaemia [Not Recovered/Not Resolved]
  - Thrombocytosis [Recovered/Resolved]
